FAERS Safety Report 4779158-0 (Version None)
Quarter: 2005Q3

REPORT INFORMATION
  Report Type: 
  Country: None (occurrence: None)
  Receive Date: 20050926
  Receipt Date: 20050808
  Transmission Date: 20060218
  Serious: Yes (Hospitalization)
  Sender: FDA-Public Use
  Company Number: US-MERCK-0508USA01540

PATIENT
  Age: 59 Year
  Sex: Male
  Weight: 77 kg

DRUGS (9)
  1. VIOXX [Suspect]
     Indication: PAIN
     Route: 048
     Dates: start: 20020116, end: 20030127
  2. VIOXX [Suspect]
     Route: 065
     Dates: start: 20020805
  3. PAXIL [Concomitant]
     Route: 065
  4. NADOLOL [Concomitant]
     Route: 065
  5. GLUCOPHAGE [Concomitant]
     Route: 065
  6. AMARYL [Concomitant]
     Route: 065
  7. ACETAMINOPHEN AND HYDROCODONE BITARTRATE [Concomitant]
     Route: 065
  8. PREDNISONE [Concomitant]
     Route: 065
  9. AMOXIL [Concomitant]
     Route: 065

REACTIONS (57)
  - ACCIDENTAL EXPOSURE [None]
  - ANAEMIA [None]
  - ANGINA PECTORIS [None]
  - ANGINA UNSTABLE [None]
  - ANOREXIA [None]
  - ARTHRALGIA [None]
  - ASTHENIA [None]
  - BACK PAIN [None]
  - CARDIAC STRESS TEST ABNORMAL [None]
  - CHEST DISCOMFORT [None]
  - CHEST PAIN [None]
  - CORONARY ARTERY ATHEROSCLEROSIS [None]
  - CORONARY ARTERY DISEASE [None]
  - DECREASED APPETITE [None]
  - DEPRESSION [None]
  - DIARRHOEA [None]
  - DIZZINESS [None]
  - DRY MOUTH [None]
  - DYSPNOEA [None]
  - DYSURIA [None]
  - EAR DISCOMFORT [None]
  - ELECTROLYTE IMBALANCE [None]
  - EXPOSURE TO TOXIC AGENT [None]
  - FATIGUE [None]
  - FIBROMYALGIA [None]
  - HEADACHE [None]
  - HYPERGLYCAEMIA [None]
  - HYPERHIDROSIS [None]
  - HYPONATRAEMIA [None]
  - IMPAIRED WORK ABILITY [None]
  - INAPPROPRIATE ANTIDIURETIC HORMONE SECRETION [None]
  - INFLUENZA LIKE ILLNESS [None]
  - INSOMNIA [None]
  - LACTIC ACIDOSIS [None]
  - MICTURITION URGENCY [None]
  - MUSCLE TWITCHING [None]
  - MUSCULAR WEAKNESS [None]
  - MYALGIA [None]
  - MYOCARDIAL INFARCTION [None]
  - NAUSEA [None]
  - NOCTURIA [None]
  - PAIN [None]
  - PARAESTHESIA [None]
  - POISONING [None]
  - POLLAKIURIA [None]
  - POLYARTHRITIS [None]
  - POSTOPERATIVE FEVER [None]
  - PYREXIA [None]
  - RAYNAUD'S PHENOMENON [None]
  - RENAL DISORDER [None]
  - RHINORRHOEA [None]
  - SHOULDER PAIN [None]
  - SILENT MYOCARDIAL INFARCTION [None]
  - STOMACH DISCOMFORT [None]
  - VIRAL INFECTION [None]
  - VOMITING [None]
  - WEIGHT DECREASED [None]
